FAERS Safety Report 9618913 (Version 2)
Quarter: 2013Q4

REPORT INFORMATION
  Report Type: Report from Study
  Country: US (occurrence: US)
  Receive Date: 20131014
  Receipt Date: 20131024
  Transmission Date: 20140711
  Serious: Yes (Death)
  Sender: FDA-Public Use
  Company Number: US-IPSEN BIOPHARMACEUTICALS, INC.-2013-4464

PATIENT
  Age: 60 Year
  Sex: Male

DRUGS (2)
  1. SOMATULINE DEPOT INJECTION (60MG) [Suspect]
     Indication: ACROMEGALY
     Dosage: 60 MG
     Route: 058
     Dates: start: 20100421, end: 20130918
  2. SOMATULINE DEPOT INJECTION (60MG) [Suspect]
     Dosage: 90 MG
     Route: 058
     Dates: start: 20091106, end: 20100421

REACTIONS (1)
  - Death [Fatal]
